FAERS Safety Report 14613840 (Version 1)
Quarter: 2018Q1

REPORT INFORMATION
  Report Type: Spontaneous
  Country: FR (occurrence: FR)
  Receive Date: 20180308
  Receipt Date: 20180308
  Transmission Date: 20180509
  Serious: Yes (Other)
  Sender: FDA-Public Use
  Company Number: FR-MERCK KGAA-2043308

PATIENT
  Age: 59 Year
  Sex: Female

DRUGS (1)
  1. NOVOTHYROX [Suspect]
     Active Substance: LEVOTHYROXINE SODIUM
     Indication: PRODUCT USED FOR UNKNOWN INDICATION
     Dates: start: 201704

REACTIONS (31)
  - Insomnia [None]
  - Hot flush [None]
  - Weight decreased [None]
  - Fatigue [None]
  - Myalgia [None]
  - Depression [None]
  - Disturbance in attention [None]
  - Affective disorder [None]
  - Malaise [None]
  - Palpitations [None]
  - Muscle spasms [None]
  - Loss of libido [None]
  - Tri-iodothyronine increased [None]
  - Feeling cold [None]
  - Alopecia [None]
  - Somnolence [None]
  - Amnesia [None]
  - Dizziness [None]
  - Dry skin [None]
  - Visual impairment [None]
  - Chills [None]
  - Tachycardia [None]
  - Anxiety [None]
  - Emotional disorder [None]
  - Feeling drunk [None]
  - Decreased interest [None]
  - Loss of personal independence in daily activities [None]
  - Abdominal distension [None]
  - Irritability [None]
  - Feeling abnormal [None]
  - Diarrhoea [None]

NARRATIVE: CASE EVENT DATE: 2017
